FAERS Safety Report 11098855 (Version 3)
Quarter: 2015Q2

REPORT INFORMATION
  Report Type: Spontaneous
  Country: IT (occurrence: IT)
  Receive Date: 20150508
  Receipt Date: 20150521
  Transmission Date: 20150821
  Serious: Yes (Hospitalization)
  Sender: FDA-Public Use
  Company Number: IT-ROCHE-1574905

PATIENT
  Age: 66 Year
  Sex: Female
  Weight: 54 kg

DRUGS (14)
  1. AVASTIN [Suspect]
     Active Substance: BEVACIZUMAB
     Dosage: 1 TO 6 CYCLE OF MAINTENANCE TREATMENT
     Route: 042
     Dates: start: 20141031, end: 20150213
  2. DEXAMETHASONE 21-PHOSPHATE DISODIUM SALT [Concomitant]
     Route: 042
  3. NEULASTA [Concomitant]
     Active Substance: PEGFILGRASTIM
  4. AVASTIN [Suspect]
     Active Substance: BEVACIZUMAB
     Indication: OVARIAN CANCER
     Dosage: 1ST CHEMOTHERAPY CYCLE?DAY 1
     Route: 042
     Dates: start: 20140613
  5. TAXOL [Suspect]
     Active Substance: PACLITAXEL
     Indication: OVARIAN CANCER
     Dosage: 1ST CHEMOTHERAPY CYCLE?THERAPY STOOPED ON 10/OCT/2014
     Route: 042
     Dates: start: 20140613
  6. PANTORC [Concomitant]
     Active Substance: PANTOPRAZOLE SODIUM
     Route: 042
  7. TAXOL [Suspect]
     Active Substance: PACLITAXEL
     Dosage: 2 CHEMOTHERAPY CYCLE
     Route: 042
  8. AVASTIN [Suspect]
     Active Substance: BEVACIZUMAB
     Dosage: 2 CHEMOTHERAPY CYCLE
     Route: 042
  9. TRIMETON (ITALY) [Concomitant]
     Dosage: 10 MG/1 ML 5 X 1 ML AMPOULES
     Route: 042
  10. AVASTIN [Suspect]
     Active Substance: BEVACIZUMAB
     Dosage: 4,5 AND 6 CYCLE
     Route: 042
     Dates: start: 20140829, end: 20141010
  11. CARBOPLATIN. [Suspect]
     Active Substance: CARBOPLATIN
     Indication: OVARIAN CANCER
     Dosage: 1ST CHEMOTHERAPY CYCLE
     Route: 042
     Dates: start: 20140613, end: 20141010
  12. CARBOPLATIN. [Suspect]
     Active Substance: CARBOPLATIN
     Dosage: 2 CHEMOTHERAPY CYCLE
     Route: 042
  13. CARBOPLATIN. [Suspect]
     Active Substance: CARBOPLATIN
     Dosage: 3RD CHEMOTHERAPY CYCLE WITH PEGFILGRASTIM ON DAY 1 AND WITHOUT BEVACIZUMAB?4 TH CHEMOTHERAPY CYCLE W
     Route: 042
     Dates: start: 20140808, end: 20141010
  14. TAXOL [Suspect]
     Active Substance: PACLITAXEL
     Route: 042
     Dates: start: 20140808, end: 20141010

REACTIONS (2)
  - Blast cells present [Unknown]
  - Leukocytosis [Unknown]

NARRATIVE: CASE EVENT DATE: 20150326
